FAERS Safety Report 14344138 (Version 1)
Quarter: 2018Q1

REPORT INFORMATION
  Report Type: Spontaneous
  Country: US (occurrence: US)
  Receive Date: 20180102
  Receipt Date: 20180102
  Transmission Date: 20180509
  Serious: Yes (Death, Other)
  Sender: FDA-Public Use
  Company Number: US-OTSUKA-2017_028430

PATIENT
  Age: 15 Year
  Sex: Male

DRUGS (2)
  1. FLUDARABINE [Suspect]
     Active Substance: FLUDARABINE PHOSPHATE
     Indication: STEM CELL TRANSPLANT
     Dosage: 40 MG/M2, (-5 TO -2 )
     Route: 065
  2. BUSULFEX [Suspect]
     Active Substance: BUSULFAN
     Indication: STEM CELL TRANSPLANT
     Dosage: 0.8 MG/KG, QD (-5 TO -2 )
     Route: 042

REACTIONS (4)
  - Venoocclusive liver disease [Unknown]
  - Pulmonary haemorrhage [Fatal]
  - Drug administration error [Unknown]
  - Product use in unapproved indication [Unknown]
